FAERS Safety Report 6782825-0 (Version None)
Quarter: 2010Q2

REPORT INFORMATION
  Report Type: 
  Country: None (occurrence: None)
  Receive Date: 20100616
  Receipt Date: 20100601
  Transmission Date: 20101027
  Serious: Yes (Death)
  Sender: FDA-Public Use
  Company Number: 012792

PATIENT
  Sex: Male
  Weight: 75 kg

DRUGS (2)
  1. VIMPAT [Suspect]
     Indication: EPILEPSY
     Dosage: (200 UNITS  UNSPECIFIED AS USED. TOTAL DAILY DOSE 400 UNITS UNSPECIFIED ORAL)
     Route: 048
     Dates: start: 20081001
  2. CARBAMAZEPINE [Suspect]
     Indication: EPILEPSY
     Dosage: (600 UNITS UNSPECIFIED AS USED. TOTAL DAILY DOSE 1200 UNITS UNSPECIFIED ORAL); FEW YEARS
     Route: 048

REACTIONS (1)
  - EPILEPSY [None]
